FAERS Safety Report 21495953 (Version 1)
Quarter: 2022Q4

REPORT INFORMATION
  Report Type: Spontaneous
  Country: US (occurrence: US)
  Receive Date: 20221022
  Receipt Date: 20221022
  Transmission Date: 20230113
  Serious: No
  Sender: FDA-Public Use
  Company Number: US-ABBVIE-4171483

PATIENT
  Sex: Female

DRUGS (1)
  1. VENCLEXTA [Suspect]
     Active Substance: VENETOCLAX
     Indication: Myelodysplastic syndrome
     Dosage: TOOK 1 TABLET BY MOUTH DAILY.?TOOK ON DAYS 1-14 OF EACH CYCLE. TOOK WITH FOOD, SWALLOW WHOLE, DID...
     Route: 048

REACTIONS (1)
  - Off label use [Unknown]
